FAERS Safety Report 7544390-X (Version None)
Quarter: 2011Q2

REPORT INFORMATION
  Report Type: 
  Country: None (occurrence: None)
  Receive Date: 20110613
  Receipt Date: 20080825
  Transmission Date: 20111010
  Serious: Yes (Death)
  Sender: FDA-Public Use
  Company Number: PHHY2008US19140

PATIENT
  Sex: Male

DRUGS (5)
  1. CELEXA [Concomitant]
     Dosage: UNK
  2. VITAMIN E [Concomitant]
     Dosage: UNK
  3. CLOZAPINE [Suspect]
     Indication: SCHIZOPHRENIA
     Dosage: 200 MG, HS
     Dates: end: 20080101
  4. CHEMOTHERAPEUTICS NOS [Concomitant]
     Dosage: UNK
  5. SYMMETREL [Concomitant]
     Dosage: UNK

REACTIONS (1)
  - NEOPLASM MALIGNANT [None]
